FAERS Safety Report 10278121 (Version 1)
Quarter: 2014Q3

REPORT INFORMATION
  Report Type: Spontaneous
  Country: RU (occurrence: RU)
  Receive Date: 20140704
  Receipt Date: 20140704
  Transmission Date: 20150326
  Serious: Yes (Other)
  Sender: FDA-Public Use
  Company Number: RU-ASTRAZENECA-2014SE46895

PATIENT
  Age: 7 Year
  Sex: Male

DRUGS (1)
  1. OMEPRASOLE [Suspect]
     Active Substance: OMEPRAZOLE
     Indication: GASTROOESOPHAGEAL REFLUX DISEASE
     Dosage: GENERIC OF LOSEC MUPS
     Route: 048

REACTIONS (1)
  - Off label use [Unknown]
